FAERS Safety Report 8376364-3 (Version None)
Quarter: 2012Q2

REPORT INFORMATION
  Report Type: 
  Country: None (occurrence: None)
  Receive Date: 20120522
  Receipt Date: 20120508
  Transmission Date: 20120825
  Serious: Yes (Life-Threatening, Hospitalization, Disabling, Other)
  Sender: FDA-Public Use
  Company Number: US-MYLANLABS-2010AC000013

PATIENT
  Sex: Male
  Weight: 3.18 kg

DRUGS (22)
  1. FUROSEMIDE [Concomitant]
  2. ZITHROMAX [Concomitant]
  3. ANTIBIOTICS [Concomitant]
  4. AMOXICILLIN [Concomitant]
  5. CLAVULANATE POTASSIUM [Concomitant]
  6. DIGOXIN [Suspect]
     Indication: CARDIAC DISORDER
     Route: 048
     Dates: start: 19981101, end: 20090610
  7. PREDNISOLONE [Concomitant]
  8. MEBENDAZOLE [Concomitant]
  9. AUGMENTIN [Concomitant]
  10. MOTRIN [Concomitant]
  11. MILRINONE [Concomitant]
  12. NIPRIDE [Concomitant]
  13. PENICILLIN VK [Concomitant]
  14. OMEPRAZOLE [Concomitant]
  15. ALDACTONE [Concomitant]
  16. AMOXIL [Concomitant]
  17. LASIX [Concomitant]
  18. TRIMOX /00086101/ [Concomitant]
  19. EPINEPHRINE [Concomitant]
  20. DOBUTAMINE HCL [Concomitant]
  21. CAPTOPRIL [Concomitant]
  22. SPIRONOLACTONE [Concomitant]

REACTIONS (61)
  - COARCTATION OF THE AORTA [None]
  - FOETAL CARDIAC DISORDER [None]
  - AORTIC VALVE REPAIR [None]
  - METABOLIC ACIDOSIS [None]
  - SINUS ARRHYTHMIA [None]
  - ELECTROCARDIOGRAM ABNORMAL [None]
  - FEAR [None]
  - PAIN [None]
  - CARDIAC ARREST [None]
  - CARDIAC VALVE DISEASE [None]
  - BRAIN INJURY [None]
  - FATIGUE [None]
  - HEART RATE IRREGULAR [None]
  - LEFT VENTRICULAR DYSFUNCTION [None]
  - NERVOUS SYSTEM DISORDER [None]
  - SUPRAVENTRICULAR EXTRASYSTOLES [None]
  - CATHETERISATION CARDIAC [None]
  - CARDIOMEGALY [None]
  - SUDDEN DEATH [None]
  - VENTRICULAR FIBRILLATION [None]
  - FEMORAL PULSE ABNORMAL [None]
  - POST PROCEDURAL COMPLICATION [None]
  - SINUS BRADYCARDIA [None]
  - HYPERSOMNIA [None]
  - HYPOPHAGIA [None]
  - CONGENITAL AORTIC VALVE STENOSIS [None]
  - CARDIO-RESPIRATORY ARREST [None]
  - BLINDNESS CORTICAL [None]
  - FRUSTRATION [None]
  - CARDIAC MURMUR [None]
  - ATELECTASIS [None]
  - HYPOXIC-ISCHAEMIC ENCEPHALOPATHY [None]
  - GAIT DISTURBANCE [None]
  - NEUROLOGICAL EXAMINATION ABNORMAL [None]
  - PAIN IN EXTREMITY [None]
  - PERITONSILLAR ABSCESS [None]
  - SCAR [None]
  - VENTRICULAR DYSFUNCTION [None]
  - ABDOMINAL PAIN UPPER [None]
  - PYREXIA [None]
  - SHONE COMPLEX [None]
  - THYMECTOMY [None]
  - ARTHRALGIA [None]
  - DYSPNOEA [None]
  - GASTROOESOPHAGEAL REFLUX DISEASE [None]
  - MUSCULOSKELETAL CHEST PAIN [None]
  - ANGIOPLASTY [None]
  - CELLULITIS [None]
  - DISORIENTATION [None]
  - STRIDOR [None]
  - RESUSCITATION [None]
  - BUNDLE BRANCH BLOCK [None]
  - HEADACHE [None]
  - RESPIRATORY SYNCYTIAL VIRUS INFECTION [None]
  - CONFUSIONAL STATE [None]
  - CHEST PAIN [None]
  - CONDUCTION DISORDER [None]
  - HEART SOUNDS ABNORMAL [None]
  - HYPERTENSION [None]
  - LEFT VENTRICULAR HYPERTROPHY [None]
  - SENSORY DISTURBANCE [None]
